FAERS Safety Report 9247140 (Version 2)
Quarter: 2013Q2

REPORT INFORMATION
  Report Type: Spontaneous
  Country: NL (occurrence: NL)
  Receive Date: 20130423
  Receipt Date: 20130513
  Transmission Date: 20140414
  Serious: Yes (Hospitalization)
  Sender: FDA-Public Use
  Company Number: NL-AMGEN-NLDSP2013027953

PATIENT
  Age: 36 Year
  Sex: Female

DRUGS (5)
  1. NEULASTA [Suspect]
     Indication: PRODUCT USED FOR UNKNOWN INDICATION
     Dosage: 6 MG, Q3WK
     Route: 058
     Dates: start: 20130122
  2. DEXAMETHASON                       /00016001/ [Concomitant]
     Dosage: UNK
  3. EMEND                              /01627301/ [Concomitant]
     Dosage: UNK
  4. CIPROFLOXACINE                     /00697201/ [Concomitant]
     Dosage: UNK
  5. CHEMOTHERAPEUTICS [Concomitant]
     Dosage: UNK

REACTIONS (1)
  - Pyrexia [Recovering/Resolving]
